FAERS Safety Report 16317639 (Version 1)
Quarter: 2019Q2

REPORT INFORMATION
  Report Type: Spontaneous
  Country: ES (occurrence: ES)
  Receive Date: 20190516
  Receipt Date: 20190516
  Transmission Date: 20190711
  Serious: Yes (Hospitalization, Other)
  Sender: FDA-Public Use
  Company Number: ES-SA-2019SA126936

PATIENT
  Age: 69 Year
  Sex: Male

DRUGS (2)
  1. AFLIBERCEPT [Suspect]
     Active Substance: AFLIBERCEPT
     Dosage: UNK UNK, UNK
     Route: 042
     Dates: start: 20190211, end: 20190211
  2. AFLIBERCEPT [Suspect]
     Active Substance: AFLIBERCEPT
     Indication: COLON CANCER METASTATIC
     Dosage: UNK UNK, UNK
     Route: 042
     Dates: start: 20180214, end: 20180214

REACTIONS (4)
  - Anaemia [Not Recovered/Not Resolved]
  - Glomerulonephritis proliferative [Recovering/Resolving]
  - Hypersensitivity vasculitis [Recovering/Resolving]
  - Thrombotic microangiopathy [Not Recovered/Not Resolved]

NARRATIVE: CASE EVENT DATE: 20190211
